FAERS Safety Report 6591377-X (Version None)
Quarter: 2010Q1

REPORT INFORMATION
  Report Type: 
  Country: None (occurrence: None)
  Receive Date: 20100219
  Receipt Date: 20100209
  Transmission Date: 20100710
  Serious: Yes (Life-Threatening, Other)
  Sender: FDA-Public Use
  Company Number: BE-GENENTECH-298117

PATIENT
  Sex: Male
  Weight: 71 kg

DRUGS (7)
  1. MABTHERA [Suspect]
     Indication: WEGENER'S GRANULOMATOSIS
     Dosage: 1000 MG, Q2W
     Route: 042
     Dates: start: 20090715, end: 20090729
  2. STEROID NOS [Suspect]
     Indication: WEGENER'S GRANULOMATOSIS
     Dosage: 32 MG, QAM
     Route: 048
     Dates: start: 20090201
  3. OMEPRAZOLE [Concomitant]
     Indication: PROPHYLAXIS
     Dosage: 40 MG, QAM
     Route: 048
  4. RAMIPRIL [Concomitant]
     Indication: HYPERTENSION
     Dosage: 2.5 MG, QAM
     Route: 048
  5. GLUCOPHAGE [Concomitant]
     Indication: TYPE 2 DIABETES MELLITUS
     Dosage: 850 MG, BID
     Route: 048
  6. FOSAMAX [Concomitant]
     Indication: OSTEOPOROSIS
     Dosage: 10 MG, QAM
     Route: 048
  7. SEROXAT [Concomitant]
     Indication: DEPRESSION
     Dosage: 20 MG, QAM
     Route: 048

REACTIONS (3)
  - PNEUMOCYSTIS JIROVECI PNEUMONIA [None]
  - POLYNEUROPATHY [None]
  - PULMONARY EMBOLISM [None]
